FAERS Safety Report 7110832-7 (Version None)
Quarter: 2010Q4

REPORT INFORMATION
  Report Type: 
  Country: None (occurrence: None)
  Receive Date: 20101118
  Receipt Date: 20101112
  Transmission Date: 20110411
  Serious: Yes (Other)
  Sender: FDA-Public Use
  Company Number: IT-BRISTOL-MYERS SQUIBB COMPANY-15387723

PATIENT
  Age: 47 Year
  Sex: Female

DRUGS (1)
  1. REYATAZ [Suspect]
     Dosage: SUSPENDED ON 3NOV10
     Dates: start: 20070101

REACTIONS (3)
  - BLOOD CREATININE INCREASED [None]
  - HAEMATURIA [None]
  - NEPHROCALCINOSIS [None]
